FAERS Safety Report 4788616-4 (Version None)
Quarter: 2005Q4

REPORT INFORMATION
  Report Type: 
  Country: None (occurrence: None)
  Receive Date: 20051005
  Receipt Date: 20050930
  Transmission Date: 20060501
  Serious: Yes (Hospitalization)
  Sender: FDA-Public Use
  Company Number: DEPFP-E-20050004 - V001

PATIENT
  Age: 63 Year
  Sex: Male

DRUGS (7)
  1. NAVELBINE [Suspect]
     Indication: NON-SMALL CELL LUNG CANCER
     Route: 042
     Dates: end: 20040413
  2. GEMCITABINE [Concomitant]
     Route: 065
     Dates: start: 20031001, end: 20040201
  3. XIPAMIDE [Concomitant]
     Route: 065
  4. KALINOR [Concomitant]
     Route: 065
  5. MST [Concomitant]
     Route: 065
  6. INSULIN [Concomitant]
     Route: 065
  7. MOVICOL [Concomitant]
     Route: 065

REACTIONS (11)
  - ABDOMINAL PAIN [None]
  - BLOOD BILIRUBIN INCREASED [None]
  - DYSPNOEA [None]
  - FATIGUE [None]
  - GENERAL PHYSICAL HEALTH DETERIORATION [None]
  - HAEMOGLOBIN DECREASED [None]
  - JAUNDICE [None]
  - LEUKOPENIA [None]
  - OEDEMA PERIPHERAL [None]
  - VOMITING [None]
  - WEIGHT DECREASED [None]
